FAERS Safety Report 18973708 (Version 1)
Quarter: 2021Q1

REPORT INFORMATION
  Report Type: Spontaneous
  Country: JP (occurrence: JP)
  Receive Date: 20210305
  Receipt Date: 20210305
  Transmission Date: 20210420
  Serious: Yes (Other)
  Sender: FDA-Public Use
  Company Number: JP-UNITED THERAPEUTICS-UNT-2018-004085

PATIENT
  Age: 46 Year
  Sex: Female
  Weight: 32.8 kg

DRUGS (35)
  1. REMODULIN [Suspect]
     Active Substance: TREPROSTINIL
     Dosage: 0.016 ?G/KG, CONTINUING
     Route: 058
     Dates: start: 2018
  2. REMODULIN [Suspect]
     Active Substance: TREPROSTINIL
     Dosage: UNK UNK, CONTINUING (12.5 MCL/H)
     Route: 058
     Dates: start: 2018
  3. K?SUPPLY [Concomitant]
     Active Substance: POTASSIUM CHLORIDE
     Indication: PROPHYLAXIS
     Dosage: UNK
     Route: 048
     Dates: start: 20180222, end: 20190214
  4. REMODULIN [Suspect]
     Active Substance: TREPROSTINIL
     Dosage: UNK UNK, CONTINUING (10 MCL/H)
     Route: 058
     Dates: start: 2018
  5. REMODULIN [Suspect]
     Active Substance: TREPROSTINIL
     Dosage: 0.0286 ?G/KG, CONTINUING
     Route: 058
  6. TRACLEER [Concomitant]
     Active Substance: BOSENTAN
     Indication: ATRIAL SEPTAL DEFECT
  7. UPTRAVI [Concomitant]
     Active Substance: SELEXIPAG
     Indication: PULMONARY ARTERIAL HYPERTENSION
     Dosage: UNK
     Route: 048
     Dates: start: 201601, end: 20180131
  8. SPIRONOLACTONE. [Concomitant]
     Active Substance: SPIRONOLACTONE
     Indication: ATRIAL SEPTAL DEFECT
  9. ADEMPAS [Concomitant]
     Active Substance: RIOCIGUAT
     Indication: PULMONARY ARTERIAL HYPERTENSION
     Dosage: UNK
     Route: 048
  10. FERROUS SODIUM CITRATE [Concomitant]
     Active Substance: SODIUM FERROUS CITRATE
     Indication: PROPHYLAXIS
     Dosage: UNK
     Route: 048
  11. BEPRICOR [Concomitant]
     Active Substance: BEPRIDIL
     Indication: PRODUCT USED FOR UNKNOWN INDICATION
     Dosage: UNK
     Route: 048
  12. CODEINE PHOSPHATE [Concomitant]
     Active Substance: CODEINE PHOSPHATE
     Indication: PROPHYLAXIS
     Dosage: UNK
     Route: 048
  13. FLUITRAN [Concomitant]
     Active Substance: TRICHLORMETHIAZIDE
     Indication: PULMONARY ARTERIAL HYPERTENSION
     Dosage: UNK
     Route: 048
     Dates: start: 20180222
  14. REMODULIN [Suspect]
     Active Substance: TREPROSTINIL
     Indication: PULMONARY ARTERIAL HYPERTENSION
     Dosage: UNK UNK, CONTINUING
     Route: 058
     Dates: start: 20180126
  15. REMODULIN [Suspect]
     Active Substance: TREPROSTINIL
     Dosage: 0.0208 ?G/KG, CONTINUING
     Route: 058
     Dates: start: 201802
  16. SPIRONOLACTONE. [Concomitant]
     Active Substance: SPIRONOLACTONE
     Indication: PULMONARY ARTERIAL HYPERTENSION
     Dosage: UNK
     Route: 048
  17. ADEMPAS [Concomitant]
     Active Substance: RIOCIGUAT
     Indication: ATRIAL SEPTAL DEFECT
  18. CARELOAD [Concomitant]
     Active Substance: BERAPROST SODIUM
     Indication: PULMONARY ARTERIAL HYPERTENSION
     Dosage: UNK
     Route: 048
     Dates: start: 201301, end: 201601
  19. UPTRAVI [Concomitant]
     Active Substance: SELEXIPAG
     Indication: ATRIAL SEPTAL DEFECT
  20. REMODULIN [Suspect]
     Active Substance: TREPROSTINIL
     Indication: ATRIAL SEPTAL DEFECT
     Dosage: 0.0104 ?G/KG, CONTINUING
     Route: 058
     Dates: start: 2018
  21. TRACLEER [Concomitant]
     Active Substance: BOSENTAN
     Indication: PULMONARY ARTERIAL HYPERTENSION
     Dosage: UNK
     Route: 048
     Dates: start: 201206
  22. ADCIRCA [Concomitant]
     Active Substance: TADALAFIL
     Indication: PULMONARY ARTERIAL HYPERTENSION
     Dosage: UNK
     Route: 048
     Dates: start: 201206
  23. ADCIRCA [Concomitant]
     Active Substance: TADALAFIL
     Indication: ATRIAL SEPTAL DEFECT
  24. LYRICA [Concomitant]
     Active Substance: PREGABALIN
     Indication: PROPHYLAXIS
     Dosage: UNK
     Route: 048
     Dates: start: 20180222, end: 20180321
  25. FUROSEMIDE. [Concomitant]
     Active Substance: FUROSEMIDE
     Indication: PULMONARY ARTERIAL HYPERTENSION
     Dosage: UNK
     Route: 048
  26. REMODULIN [Suspect]
     Active Substance: TREPROSTINIL
     Dosage: 0.050 ?G/KG, CONTINUING
     Route: 058
     Dates: start: 2018
  27. REMODULIN [Suspect]
     Active Substance: TREPROSTINIL
     Dosage: 0.030 ?G/KG, CONTINUING (APPROXIMATELY)
     Route: 058
     Dates: start: 2018
  28. ELIQUIS [Concomitant]
     Active Substance: APIXABAN
     Indication: PRODUCT USED FOR UNKNOWN INDICATION
     Dosage: UNK
     Route: 048
  29. TANADOPA [Concomitant]
     Active Substance: DOCARPAMINE
     Indication: PULMONARY ARTERIAL HYPERTENSION
     Dosage: UNK
     Route: 048
  30. REMODULIN [Suspect]
     Active Substance: TREPROSTINIL
     Dosage: 0.0273 ?G/KG, CONTINUING
     Route: 058
     Dates: start: 201802
  31. REMODULIN [Suspect]
     Active Substance: TREPROSTINIL
     Dosage: 0.0351 ?G/KG, CONTINUING
     Route: 058
     Dates: start: 2018
  32. CARELOAD [Concomitant]
     Active Substance: BERAPROST SODIUM
     Indication: ATRIAL SEPTAL DEFECT
  33. TANADOPA [Concomitant]
     Active Substance: DOCARPAMINE
     Indication: ATRIAL SEPTAL DEFECT
  34. FLUITRAN [Concomitant]
     Active Substance: TRICHLORMETHIAZIDE
     Indication: ATRIAL SEPTAL DEFECT
  35. FUROSEMIDE. [Concomitant]
     Active Substance: FUROSEMIDE
     Indication: ATRIAL SEPTAL DEFECT

REACTIONS (11)
  - Pain in jaw [Recovering/Resolving]
  - Injection site pruritus [Recovering/Resolving]
  - Lymphadenopathy [Recovering/Resolving]
  - Nasopharyngitis [Recovered/Resolved]
  - Gastrointestinal tract adenoma [Recovering/Resolving]
  - Oxygen saturation abnormal [Not Recovered/Not Resolved]
  - Vomiting [Recovering/Resolving]
  - Diarrhoea [Recovering/Resolving]
  - Catheter site extravasation [Unknown]
  - Nausea [Recovering/Resolving]
  - Injection site pain [Recovering/Resolving]

NARRATIVE: CASE EVENT DATE: 20180204
